FAERS Safety Report 10163247 (Version 1)
Quarter: 2014Q2

REPORT INFORMATION
  Report Type: Spontaneous
  Country: US (occurrence: US)
  Receive Date: 20140509
  Receipt Date: 20140509
  Transmission Date: 20141212
  Serious: No
  Sender: FDA-Public Use
  Company Number: US-PFIZER INC-2014124917

PATIENT
  Age: 69 Year
  Sex: Male
  Weight: 92.97 kg

DRUGS (2)
  1. INLYTA [Suspect]
     Indication: RENAL CANCER
     Dosage: 5 MG, 2X/DAY
     Route: 048
     Dates: start: 201404, end: 201404
  2. INLYTA [Suspect]
     Dosage: 5 MG, 1X/DAY
     Route: 048
     Dates: start: 201404

REACTIONS (1)
  - Abdominal discomfort [Unknown]
